FAERS Safety Report 5720667-5 (Version None)
Quarter: 2008Q2

REPORT INFORMATION
  Report Type: 
  Country: None (occurrence: None)
  Receive Date: 20080429
  Receipt Date: 20080418
  Transmission Date: 20081010
  Serious: Yes (Hospitalization, Other)
  Sender: FDA-Public Use
  Company Number: SE-JNJFOC-20080405547

PATIENT
  Age: 59 Year
  Sex: Male

DRUGS (3)
  1. REMICADE [Suspect]
     Route: 042
  2. REMICADE [Suspect]
     Indication: COLITIS ULCERATIVE
     Route: 042
  3. AZATHIOPRINE [Concomitant]

REACTIONS (3)
  - COLITIS ULCERATIVE [None]
  - MIGRAINE [None]
  - TUBERCULOSIS [None]
